FAERS Safety Report 14227063 (Version 2)
Quarter: 2018Q1

REPORT INFORMATION
  Report Type: Spontaneous
  Country: US (occurrence: US)
  Receive Date: 20171127
  Receipt Date: 20180216
  Transmission Date: 20180508
  Serious: Yes (Other)
  Sender: FDA-Public Use
  Company Number: US-PFIZER INC-2017507244

PATIENT
  Age: 68 Year
  Sex: Female
  Weight: 104.33 kg

DRUGS (12)
  1. TRAVATAN Z [Concomitant]
     Active Substance: TRAVOPROST
     Indication: GLAUCOMA
     Dosage: 0.004% ONE DROP IN EACH EYE AT NIGHT
     Route: 047
  2. FLUTICASONE. [Concomitant]
     Active Substance: FLUTICASONE
     Indication: PROPHYLAXIS
     Dosage: 50MCG, ONE SPRAY EACH NOSTRIL TWICE A DAY
  3. HYDROCODONE/ACETAMINOPHEN [Concomitant]
     Active Substance: ACETAMINOPHEN\HYDROCODONE
     Indication: PAIN
     Dosage: [HYDROCODONE BITARTRATE 5MG]/[ PARACETAMOL 325 MG] 5-325MG ONE TABLET EVERY 12 HOURS, OR TWICE A DAY
  4. XELJANZ XR [Suspect]
     Active Substance: TOFACITINIB CITRATE
     Indication: RHEUMATOID ARTHRITIS
     Dosage: 11MG, CAPSULE, BY MOUTH, ONCE A DAY
     Route: 048
     Dates: start: 201708, end: 20171027
  5. TIMOLOL. [Concomitant]
     Active Substance: TIMOLOL
     Indication: GLAUCOMA
     Dosage: 0.5% ONE DROP TWICE A DAY, BOTH EYES
     Route: 047
  6. MELOXICAM. [Concomitant]
     Active Substance: MELOXICAM
     Indication: ARTHRITIS
     Dosage: 15 MG
  7. ASPIRIN. [Concomitant]
     Active Substance: ASPIRIN
     Dosage: 81 MG, UNK
  8. GLUCOSAMINE [Concomitant]
     Active Substance: GLUCOSAMINE
     Indication: ARTHRITIS
     Dosage: 15MG, TWICE A DAY
  9. CALTRATE 600+D [Concomitant]
     Indication: SUPPLEMENTATION THERAPY
     Dosage: TWO A DAY
  10. LEVOCETIRIZINE [Concomitant]
     Active Substance: LEVOCETIRIZINE
     Indication: HYPERSENSITIVITY
     Dosage: 5MG, ONCE A DAY
  11. HYDROXYCHLOROQUINE [Concomitant]
     Active Substance: HYDROXYCHLOROQUINE
     Indication: ARTHRITIS
     Dosage: 200MG, TWICE A DAY
  12. METHENAMINE [Concomitant]
     Active Substance: METHENAMINE
     Indication: PROPHYLAXIS
     Dosage: 1GRAM, TWICE A DAY

REACTIONS (2)
  - Urinary tract infection [Not Recovered/Not Resolved]
  - Tooth abscess [Unknown]

NARRATIVE: CASE EVENT DATE: 20171020
